FAERS Safety Report 17957044 (Version 1)
Quarter: 2020Q2

REPORT INFORMATION
  Report Type: Report from Study
  Country: FR (occurrence: FR)
  Receive Date: 20200629
  Receipt Date: 20200629
  Transmission Date: 20200714
  Serious: Yes (Other)
  Sender: FDA-Public Use
  Company Number: FR-ROCHE-2630400

PATIENT

DRUGS (1)
  1. TOCILIZUMAB. [Suspect]
     Active Substance: TOCILIZUMAB
     Indication: AUTOINFLAMMATORY DISEASE
     Route: 042

REACTIONS (9)
  - Cellulitis [Unknown]
  - Respiratory tract infection [Unknown]
  - Febrile neutropenia [Unknown]
  - Drug ineffective [Unknown]
  - Appendicitis [Unknown]
  - Dizziness [Unknown]
  - Varicella [Unknown]
  - Liver function test abnormal [Unknown]
  - Hypertension [Unknown]
